FAERS Safety Report 15322136 (Version 2)
Quarter: 2018Q4

REPORT INFORMATION
  Report Type: Report from Study
  Country: NL (occurrence: NL)
  Receive Date: 20180827
  Receipt Date: 20181127
  Transmission Date: 20190204
  Serious: Yes (Life-Threatening, Hospitalization, Other)
  Sender: FDA-Public Use
  Company Number: NL-INTERCEPT-CTOCA2018001330

PATIENT

DRUGS (8)
  1. VITAMIN D3 [Concomitant]
     Active Substance: CHOLECALCIFEROL
     Indication: OSTEOPENIA
     Dosage: 800 IU, QD
     Route: 048
     Dates: start: 2008
  2. ALENDRONIC ACID [Concomitant]
     Active Substance: ALENDRONIC ACID
     Indication: OSTEOPENIA
     Dosage: 70 MG, QW
     Route: 048
     Dates: start: 20170221
  3. OBETICHOLIC ACID [Suspect]
     Active Substance: OBETICHOLIC ACID
     Indication: PRIMARY BILIARY CHOLANGITIS
     Dosage: 5 MG, QD
     Route: 048
     Dates: start: 20131119
  4. CALCICHEW [Concomitant]
     Active Substance: CALCIUM CARBONATE
     Indication: OSTEOPENIA
     Dosage: 125 G, QD
     Route: 048
     Dates: start: 2008
  5. VITAMIN B12 [Concomitant]
     Active Substance: CYANOCOBALAMIN
     Indication: PERNICIOUS ANAEMIA
     Dosage: 1000 MCG, QD
     Route: 048
     Dates: start: 20141222
  6. URSOFALK [Concomitant]
     Active Substance: URSODIOL
     Indication: PRIMARY BILIARY CHOLANGITIS
     Dosage: 1250 MG, QD
     Route: 048
     Dates: start: 20090225
  7. FENPROCOUMON [Concomitant]
     Active Substance: PHENPROCOUMON
     Indication: ANTIPHOSPHOLIPID SYNDROME
     Dosage: 3 MG, PRN
     Route: 048
     Dates: start: 1993
  8. NIFEDIPINE. [Concomitant]
     Active Substance: NIFEDIPINE
     Indication: CYANOSIS
     Dosage: 20 MG, BID
     Route: 048
     Dates: start: 20140819

REACTIONS (1)
  - Cardiac failure congestive [Unknown]

NARRATIVE: CASE EVENT DATE: 20180818
